FAERS Safety Report 4276713-1 (Version None)
Quarter: 2004Q1

REPORT INFORMATION
  Report Type: 
  Country: None (occurrence: None)
  Receive Date: 20040120
  Receipt Date: 20040108
  Transmission Date: 20041129
  Serious: Yes (Other)
  Sender: FDA-Public Use
  Company Number: JP-JNJFOC-20031203946

PATIENT
  Age: 63 Year
  Sex: Male

DRUGS (5)
  1. RISPERDAL [Suspect]
     Indication: ANXIETY
     Dosage: 2 MG, IN 1 DAY, ORAL
     Route: 048
  2. AMIODARONE HCL [Concomitant]
  3. SPIRONOLACTONE [Concomitant]
  4. LEVOTHYROXINE SODIUM [Concomitant]
  5. FUROSEMIDE [Concomitant]

REACTIONS (2)
  - NEUROLEPTIC MALIGNANT SYNDROME [None]
  - SYSTEMIC CANDIDA [None]
